FAERS Safety Report 7102092-8 (Version None)
Quarter: 2010Q4

REPORT INFORMATION
  Report Type: 
  Country: None (occurrence: None)
  Receive Date: 20101115
  Receipt Date: 20101104
  Transmission Date: 20110411
  Serious: Yes (Other)
  Sender: FDA-Public Use
  Company Number: US-BIOGENIDEC-2010BI036271

PATIENT
  Age: 65 Year
  Sex: Female

DRUGS (1)
  1. TYSABRI [Suspect]
     Indication: MULTIPLE SCLEROSIS
     Route: 042
     Dates: start: 20060922

REACTIONS (6)
  - ASTHENIA [None]
  - CONVULSION [None]
  - DYSTONIA [None]
  - EAR CONGESTION [None]
  - HYPOAESTHESIA [None]
  - MUSCLE TIGHTNESS [None]
